FAERS Safety Report 14946167 (Version 1)
Quarter: 2018Q2

REPORT INFORMATION
  Report Type: Spontaneous
  Country: US (occurrence: US)
  Receive Date: 20180529
  Receipt Date: 20180529
  Transmission Date: 20180711
  Serious: No
  Sender: FDA-Public Use
  Company Number: US-BAYER-2018-063414

PATIENT
  Age: 52 Year
  Sex: Female

DRUGS (2)
  1. CLIMARA PRO [Suspect]
     Active Substance: ESTRADIOL\LEVONORGESTREL
     Indication: MENOPAUSAL DISORDER
     Dosage: UNK
     Route: 062
     Dates: start: 20180329, end: 20180329
  2. NO IDENTIFIABLE DRUG [Suspect]
     Active Substance: UNSPECIFIED INGREDIENT
     Route: 062
     Dates: start: 20180329, end: 20180329

REACTIONS (2)
  - Drug dose omission [None]
  - Product adhesion issue [None]

NARRATIVE: CASE EVENT DATE: 20180329
